FAERS Safety Report 8495779-6 (Version None)
Quarter: 2012Q2

REPORT INFORMATION
  Report Type: 
  Country: None (occurrence: None)
  Receive Date: 20120405
  Receipt Date: 20091125
  Transmission Date: 20120825
  Serious: Yes (Disabling)
  Sender: FDA-Public Use
  Company Number: PHEH2009US16696

PATIENT
  Age: 64 Year
  Sex: Female
  Weight: 76.2 kg

DRUGS (3)
  1. DIOVAN [Concomitant]
  2. LIPITOR [Concomitant]
  3. RECLAST [Suspect]
     Indication: OSTEOPOROSIS
     Dosage: 5 MG ONCE, INTRAVENOUS
     Route: 042
     Dates: start: 20091106

REACTIONS (6)
  - RENAL IMPAIRMENT [None]
  - CHILLS [None]
  - MUSCULOSKELETAL CHEST PAIN [None]
  - PYREXIA [None]
  - PAIN [None]
  - BACK PAIN [None]
